FAERS Safety Report 9238427 (Version 1)
Quarter: 2013Q2

REPORT INFORMATION
  Report Type: Spontaneous
  Country: US (occurrence: None)
  Receive Date: 20130417
  Receipt Date: 20130417
  Transmission Date: 20140414
  Serious: Yes (Other)
  Sender: FDA-Public Use
  Company Number: None

PATIENT
  Age: 51 Year
  Sex: Female
  Weight: 58.51 kg

DRUGS (2)
  1. FLUOXETINE [Suspect]
  2. CLONAZEPAM [Suspect]

REACTIONS (5)
  - Sedation [None]
  - Bradyphrenia [None]
  - Memory impairment [None]
  - Disturbance in attention [None]
  - Ill-defined disorder [None]
